FAERS Safety Report 21871635 (Version 2)
Quarter: 2024Q1

REPORT INFORMATION
  Report Type: Spontaneous
  Country: CN (occurrence: CN)
  Receive Date: 20230117
  Receipt Date: 20240220
  Transmission Date: 20240410
  Serious: Yes (Other)
  Sender: FDA-Public Use
  Company Number: CN-PFIZER INC-PV202300008597

PATIENT
  Age: 34 Year
  Sex: Female
  Weight: 59 kg

DRUGS (2)
  1. HEMABATE [Suspect]
     Active Substance: CARBOPROST TROMETHAMINE
     Indication: Symptomatic treatment
     Dosage: 1 ML, 1X/DAY
     Route: 030
     Dates: start: 20221115, end: 20221115
  2. OXYTOCIN [Concomitant]
     Active Substance: OXYTOCIN
     Indication: Symptomatic treatment
     Dosage: 2 ML, 1X/DAY
     Route: 030
     Dates: start: 20221115, end: 20221115

REACTIONS (3)
  - Vomiting [Recovering/Resolving]
  - Nausea [Recovering/Resolving]
  - Abdominal pain upper [Recovering/Resolving]

NARRATIVE: CASE EVENT DATE: 20221115
